FAERS Safety Report 6142505-1 (Version None)
Quarter: 2009Q2

REPORT INFORMATION
  Report Type: 
  Country: None (occurrence: None)
  Receive Date: 20090402
  Receipt Date: 20090402
  Transmission Date: 20091009
  Serious: Yes (Other)
  Sender: FDA-Public Use
  Company Number: None

PATIENT
  Age: 44 Year
  Sex: Female
  Weight: 54.4316 kg

DRUGS (2)
  1. CYMBALTA [Suspect]
     Indication: DEPRESSION
     Dosage: 1 DAY
     Dates: start: 20090120, end: 20090319
  2. CYMBALTA [Suspect]
     Indication: PAIN
     Dosage: 1 DAY
     Dates: start: 20090120, end: 20090319

REACTIONS (23)
  - ANGER [None]
  - ANXIETY [None]
  - APATHY [None]
  - ASTHENIA [None]
  - CHILLS [None]
  - CRYING [None]
  - DEPRESSED MOOD [None]
  - DRUG DEPENDENCE [None]
  - DRUG INTOLERANCE [None]
  - DRY MOUTH [None]
  - EXERCISE LACK OF [None]
  - FEELING ABNORMAL [None]
  - HYPERHIDROSIS [None]
  - INSOMNIA [None]
  - MORBID THOUGHTS [None]
  - MOVEMENT DISORDER [None]
  - ORAL PAIN [None]
  - PAIN [None]
  - RESTLESSNESS [None]
  - SPEECH DISORDER [None]
  - TONGUE DRY [None]
  - VISION BLURRED [None]
  - WITHDRAWAL SYNDROME [None]
